FAERS Safety Report 8121923-6 (Version None)
Quarter: 2012Q1

REPORT INFORMATION
  Report Type: 
  Country: None (occurrence: None)
  Receive Date: 20120208
  Receipt Date: 20120203
  Transmission Date: 20120608
  Serious: Yes (Disabling, Other)
  Sender: FDA-Public Use
  Company Number: US-PFIZER INC-2012030846

PATIENT
  Sex: Male
  Weight: 104 kg

DRUGS (8)
  1. INSULIN [Concomitant]
     Indication: DIABETES MELLITUS
     Dosage: UNK
  2. LISINOPRIL [Concomitant]
     Dosage: UNK
  3. LYRICA [Suspect]
     Indication: NEUROPATHY PERIPHERAL
     Dosage: UNK
     Dates: start: 20100901
  4. METFORMIN [Concomitant]
     Indication: DIABETES MELLITUS
     Dosage: UNK
  5. FENTANYL [Concomitant]
     Indication: DIABETES MELLITUS
     Dosage: UNK
  6. PERCOCET [Concomitant]
     Indication: DIABETES MELLITUS
     Dosage: UNK
  7. VIMOVO [Concomitant]
     Indication: DIABETES MELLITUS
     Dosage: UNK
  8. NOVOLOG [Concomitant]
     Indication: DIABETES MELLITUS
     Dosage: UNK

REACTIONS (5)
  - LIMB DISCOMFORT [None]
  - DRUG INEFFECTIVE [None]
  - PAIN IN EXTREMITY [None]
  - DYSSTASIA [None]
  - CONDITION AGGRAVATED [None]
